FAERS Safety Report 7738363-1 (Version None)
Quarter: 2011Q3

REPORT INFORMATION
  Report Type: 
  Country: None (occurrence: None)
  Receive Date: 20110908
  Receipt Date: 20110830
  Transmission Date: 20111222
  Serious: Yes (Hospitalization, Other)
  Sender: FDA-Public Use
  Company Number: JP-PFIZER INC-2011166157

PATIENT
  Age: 68 Year
  Sex: Male
  Weight: 52.5 kg

DRUGS (6)
  1. VARENICLINE TARTRATE [Suspect]
     Indication: SMOKING CESSATION THERAPY
     Dosage: 0.5 MG, 1X/DAY
     Route: 048
     Dates: start: 20110703, end: 20110705
  2. NITROL [Concomitant]
     Indication: ANGINA PECTORIS
     Dosage: UNK, AS NEEDED
     Route: 048
     Dates: start: 20110316
  3. OLMESARTAN MEDOXOMIL [Concomitant]
     Indication: HYPERTENSION
     Dosage: 10 MG, 1X/DAY
     Route: 048
     Dates: start: 20110408
  4. VARENICLINE TARTRATE [Suspect]
     Dosage: 0.5 MG, 2X/DAY
     Route: 048
     Dates: start: 20110706, end: 20110708
  5. REZALTAS [Concomitant]
     Indication: HYPERTENSION
     Dosage: UNK
     Route: 048
     Dates: start: 20110408
  6. MINITRO [Concomitant]
     Indication: ANGINA PECTORIS
     Dosage: UNK
     Route: 061
     Dates: start: 20110316

REACTIONS (3)
  - RENAL IMPAIRMENT [None]
  - ANGINA PECTORIS [None]
  - PRINZMETAL ANGINA [None]
